FAERS Safety Report 23221197 (Version 1)
Quarter: 2023Q4

REPORT INFORMATION
  Report Type: Spontaneous
  Country: CA (occurrence: None)
  Receive Date: 20231123
  Receipt Date: 20231123
  Transmission Date: 20240110
  Serious: Yes (Other)
  Sender: FDA-Public Use
  Company Number: CA-PFIZER INC-202300377360

PATIENT
  Age: 72 Year
  Sex: Male

DRUGS (1)
  1. METHOTREXATE [Suspect]
     Active Substance: METHOTREXATE
     Indication: Crohn^s disease
     Dates: end: 202304

REACTIONS (4)
  - Large intestine polyp [Unknown]
  - Diverticulum [Unknown]
  - Product use in unapproved indication [Unknown]
  - Pseudopolyp [Unknown]

NARRATIVE: CASE EVENT DATE: 20230401
